FAERS Safety Report 19189753 (Version 1)
Quarter: 2021Q2

REPORT INFORMATION
  Report Type: Spontaneous
  Country: CA (occurrence: CA)
  Receive Date: 20210428
  Receipt Date: 20210428
  Transmission Date: 20210717
  Serious: Yes (Other)
  Sender: FDA-Public Use
  Company Number: CA-PFIZER INC-2019234118

PATIENT
  Age: 56 Year
  Sex: Female

DRUGS (7)
  1. XELJANZ [Suspect]
     Active Substance: TOFACITINIB CITRATE
     Dosage: 10 MG, ALTERNATE DAY (ALTERNATING 5MG OD AND 5MG BID)
     Route: 048
     Dates: start: 2019, end: 202004
  2. XELJANZ [Suspect]
     Active Substance: TOFACITINIB CITRATE
     Dosage: 5 MG, (ALTERNATING 5MG OD AND 5MG BID)
     Route: 048
     Dates: start: 202011
  3. XELJANZ [Suspect]
     Active Substance: TOFACITINIB CITRATE
     Dosage: 5 MG, ALTERNATE DAY (5 MG OD AND 5 MG BID EVERY OTHER DAY)
     Route: 048
     Dates: start: 2019, end: 202004
  4. XELJANZ [Suspect]
     Active Substance: TOFACITINIB CITRATE
     Dosage: 10 MG, ALTERNATE DAY (ALTERNATING 5MG OD AND 5MG BID)
     Route: 048
     Dates: start: 202004, end: 202011
  5. XELJANZ [Suspect]
     Active Substance: TOFACITINIB CITRATE
     Dosage: 5 MG, ALTERNATE DAY (ALTERNATING 5MG OD AND 5MG BID)
     Route: 048
     Dates: start: 202004, end: 202011
  6. XELJANZ [Suspect]
     Active Substance: TOFACITINIB CITRATE
     Dosage: 5 MG, 2X/DAY
     Route: 048
     Dates: start: 20190801, end: 2019
  7. XELJANZ [Suspect]
     Active Substance: TOFACITINIB CITRATE
     Indication: PSORIATIC ARTHROPATHY
     Dosage: 5 MG, 2X/DAY
     Route: 048
     Dates: start: 2019, end: 2019

REACTIONS (10)
  - Malaise [Not Recovered/Not Resolved]
  - Cystitis [Unknown]
  - Infection susceptibility increased [Unknown]
  - Skin infection [Unknown]
  - Dry skin [Unknown]
  - Face injury [Unknown]
  - Formication [Not Recovered/Not Resolved]
  - Product use issue [Unknown]
  - Condition aggravated [Unknown]
  - Off label use [Unknown]

NARRATIVE: CASE EVENT DATE: 2019
